FAERS Safety Report 9940739 (Version 2)
Quarter: 2014Q2

REPORT INFORMATION
  Report Type: Report from Study
  Country: JP (occurrence: JP)
  Receive Date: 20140303
  Receipt Date: 20140401
  Transmission Date: 20141212
  Serious: Yes (Hospitalization, Other)
  Sender: FDA-Public Use
  Company Number: JP-TAKEDA-2014TJP001957

PATIENT
  Age: 76 Year
  Sex: Male
  Weight: 67 kg

DRUGS (9)
  1. PIOGLITAZONE [Suspect]
     Indication: TYPE 1 DIABETES MELLITUS
     Dosage: 7.5 MG,
     Route: 048
     Dates: start: 20110921, end: 20120215
  2. HUMALOG [Concomitant]
     Indication: TYPE 1 DIABETES MELLITUS
     Dosage: 18 IU/DAY (6 IU BEFORE BREAKFAST, 5 IU BEFORE LUNCH, 7 IU BEFORE DINNER)
     Route: 050
     Dates: end: 20120215
  3. LANTUS [Concomitant]
     Indication: TYPE 1 DIABETES MELLITUS
     Dosage: 16 IU, QD
     Route: 050
     Dates: end: 20120215
  4. EPADEL-S [Concomitant]
     Dosage: 1800 MG,
     Route: 048
  5. DIOVAN [Concomitant]
     Dosage: 80 MG,
     Route: 048
  6. CONIEL [Concomitant]
     Dosage: 4 MG,
     Route: 048
  7. OMEPRAL                            /00661201/ [Concomitant]
     Dosage: 10 MG,
     Route: 048
  8. LUPRAC [Concomitant]
     Dosage: 8 MG,
     Route: 048
  9. LIPITOR [Concomitant]
     Dosage: 10 MG,
     Route: 048

REACTIONS (4)
  - Injury [Recovered/Resolved with Sequelae]
  - Fall [Recovered/Resolved with Sequelae]
  - Subdural haematoma [Recovered/Resolved with Sequelae]
  - Hypoglycaemia [Unknown]
